FAERS Safety Report 7328150-0 (Version None)
Quarter: 2011Q1

REPORT INFORMATION
  Report Type: 
  Country: None (occurrence: None)
  Receive Date: 20110303
  Receipt Date: 20110221
  Transmission Date: 20110831
  Serious: Yes (Other)
  Sender: FDA-Public Use
  Company Number: PHHY2010US75243

PATIENT
  Sex: Female
  Weight: 44.45 kg

DRUGS (10)
  1. EXJADE [Suspect]
     Indication: MYELODYSPLASTIC SYNDROME
     Dosage: 250 MG, BID
     Route: 048
     Dates: start: 20100909
  2. CLONAZEPAM [Concomitant]
     Dosage: UNK
  3. HYDROCODONE BITARTRATE + IBUPROFEN [Concomitant]
     Dosage: UNK
  4. ASPIRIN [Concomitant]
     Dosage: UNK
  5. DIGOXIN [Concomitant]
  6. ARANESP [Concomitant]
  7. EXJADE [Suspect]
     Indication: IRON METABOLISM DISORDER
  8. LEVOTHYROXINE [Concomitant]
     Dosage: UNK
  9. CILOSTAZOL [Concomitant]
     Dosage: UNK
  10. METOPROLOL [Concomitant]

REACTIONS (9)
  - THROMBOSIS [None]
  - APATHY [None]
  - DEPRESSED MOOD [None]
  - ABASIA [None]
  - PARAESTHESIA [None]
  - ASTHENIA [None]
  - DIARRHOEA [None]
  - DEPRESSION [None]
  - DECREASED INTEREST [None]
